FAERS Safety Report 8862608 (Version 1)
Quarter: 2012Q4

REPORT INFORMATION
  Report Type: 
  Country: ES (occurrence: ES)
  Receive Date: 20121026
  Receipt Date: 20121026
  Transmission Date: 20130627
  Serious: Yes (Other)
  Sender: FDA-Public Use
  Company Number: ES-MILLENNIUM PHARMACEUTICALS, INC.-2012-07297

PATIENT

DRUGS (3)
  1. VELCADE [Suspect]
     Indication: MULTIPLE MYELOMA
     Dosage: 1.3 mg/m2, Cyclic
  2. MELPHALAN [Suspect]
     Indication: MULTIPLE MYELOMA
     Dosage: UNK
  3. PREDNISONE [Suspect]
     Indication: MULTIPLE MYELOMA
     Dosage: UNK

REACTIONS (1)
  - Necrosis [Unknown]
